FAERS Safety Report 11216152 (Version 3)
Quarter: 2016Q1

REPORT INFORMATION
  Report Type: Report from Study
  Country: GB (occurrence: GB)
  Receive Date: 20150624
  Receipt Date: 20160211
  Transmission Date: 20160525
  Serious: Yes (Death, Hospitalization)
  Sender: FDA-Public Use
  Company Number: GB-AMGEN-GBRSP2015060690

PATIENT
  Age: 76 Year
  Sex: Female

DRUGS (1)
  1. ARANESP [Suspect]
     Active Substance: DARBEPOETIN ALFA
     Indication: PRODUCT USED FOR UNKNOWN INDICATION
     Dosage: 30 MUG, Q2WK
     Route: 065

REACTIONS (3)
  - Death [Fatal]
  - Lower limb fracture [Not Recovered/Not Resolved]
  - Infection [Unknown]
